FAERS Safety Report 7157931-1 (Version None)
Quarter: 2010Q4

REPORT INFORMATION
  Report Type: 
  Country: None (occurrence: None)
  Receive Date: 20101214
  Receipt Date: 20101207
  Transmission Date: 20110411
  Serious: Yes (Disabling)
  Sender: FDA-Public Use
  Company Number: US-MERCK-1012USA01316

PATIENT

DRUGS (1)
  1. FOSAMAX [Suspect]
     Route: 048
     Dates: start: 20000601, end: 20090301

REACTIONS (4)
  - BONE DENSITY DECREASED [None]
  - FEMUR FRACTURE [None]
  - MULTIPLE FRACTURES [None]
  - OSTEOPOROSIS [None]
